FAERS Safety Report 9615012 (Version 2)
Quarter: 2013Q4

REPORT INFORMATION
  Report Type: Spontaneous
  Country: US (occurrence: US)
  Receive Date: 20131011
  Receipt Date: 20131011
  Transmission Date: 20140711
  Serious: No
  Sender: FDA-Public Use
  Company Number: US-PURDUE-USA-2013-0097379

PATIENT
  Age: 54 Year
  Sex: Female

DRUGS (2)
  1. BUTRANS [Suspect]
     Indication: PAIN
     Dosage: 20 MCG, WEEKLY
     Route: 062
     Dates: start: 20121215
  2. BUTRANS [Suspect]
     Dosage: 10 MCG, WEEKLY
     Route: 062
     Dates: start: 20130103

REACTIONS (5)
  - Drug effect increased [Unknown]
  - Somnolence [Recovered/Resolved]
  - Application site urticaria [Unknown]
  - Application site pain [Recovering/Resolving]
  - Application site rash [Recovered/Resolved]
